FAERS Safety Report 23819537 (Version 3)
Quarter: 2024Q2

REPORT INFORMATION
  Report Type: Report from Study
  Country: JP (occurrence: JP)
  Receive Date: 20240506
  Receipt Date: 20240611
  Transmission Date: 20240716
  Serious: No
  Sender: FDA-Public Use
  Company Number: JP-IPSEN Group, Research and Development-2023-28347

PATIENT
  Age: 47 Year
  Sex: Female

DRUGS (2)
  1. LANREOTIDE ACETATE [Suspect]
     Active Substance: LANREOTIDE ACETATE
     Indication: Thyroid stimulating hormone-producing pituitary tumour
     Route: 058
     Dates: start: 20231121, end: 20240116
  2. LANREOTIDE ACETATE [Suspect]
     Active Substance: LANREOTIDE ACETATE
     Route: 058
     Dates: start: 20240213

REACTIONS (3)
  - Faeces pale [Recovered/Resolved]
  - Thyroxine free decreased [Recovering/Resolving]
  - Tri-iodothyronine free decreased [Recovering/Resolving]

NARRATIVE: CASE EVENT DATE: 20231128
